FAERS Safety Report 9869234 (Version 1)
Quarter: 2014Q1

REPORT INFORMATION
  Report Type: Report from Study
  Country: US (occurrence: US)
  Receive Date: 20140205
  Receipt Date: 20140205
  Transmission Date: 20141002
  Serious: Yes (Other)
  Sender: FDA-Public Use
  Company Number: US-ROCHE-1337881

PATIENT
  Age: 3 Year
  Sex: Female
  Weight: 15.97 kg

DRUGS (21)
  1. PULMOZYME [Suspect]
     Indication: PRODUCT USED FOR UNKNOWN INDICATION
     Dosage: 1 MG/ML NEBULISER SOLUTION
     Route: 045
  2. VENTOLIN [Concomitant]
     Indication: WHEEZING
  3. SINGULAR [Concomitant]
     Route: 048
  4. QVAR [Concomitant]
     Route: 065
  5. ROCALTROL [Concomitant]
     Route: 048
  6. POTASSIUM CHLORIDE [Concomitant]
     Route: 048
  7. PROVENTIL [Concomitant]
  8. ATROVENT [Concomitant]
  9. HEPARIN, PORCINE [Concomitant]
     Route: 042
  10. SODIUM PHOSPHATE [Concomitant]
  11. RANITIDINE [Concomitant]
     Dosage: 15 MG/ML
     Route: 048
  12. GENTAMYCIN [Concomitant]
     Route: 047
  13. CITRIC ACID/SODIUM CITRATE [Concomitant]
     Route: 048
  14. BACTRIM [Concomitant]
     Route: 065
  15. MIRALAX [Concomitant]
     Route: 048
  16. FERROUS SULPHATE [Concomitant]
     Dosage: 75 MG/ML
     Route: 048
  17. NEPHRONEX [Concomitant]
  18. BENADRYL ALLERGY (UNITED STATES) [Concomitant]
     Route: 048
  19. HIZENTRA [Concomitant]
     Route: 058
  20. B COMPLEX [Concomitant]
  21. FOLIC ACID [Concomitant]

REACTIONS (6)
  - Nervousness [Unknown]
  - Cough [Unknown]
  - Hepatic enzyme increased [Unknown]
  - Urine output increased [Unknown]
  - Blood glucose abnormal [Unknown]
  - Somnolence [Unknown]
